FAERS Safety Report 4346163-8 (Version None)
Quarter: 2004Q2

REPORT INFORMATION
  Report Type: 
  Country: None (occurrence: None)
  Receive Date: 20040423
  Receipt Date: 20040423
  Transmission Date: 20050107
  Serious: Yes (Death)
  Sender: FDA-Public Use
  Company Number: None

PATIENT
  Sex: Female
  Weight: 73 kg

DRUGS (6)
  1. IMATINIB MESYLATE [Suspect]
     Indication: GLIOBLASTOMA MULTIFORME
     Dosage: 400 MG QD PO
     Route: 048
     Dates: start: 20040308, end: 20040329
  2. HYDROXYUREA [Suspect]
     Indication: GLIOBLASTOMA MULTIFORME
     Dosage: 500 MG PO BID
     Route: 048
     Dates: start: 20040308, end: 20040329
  3. SEROQUEL [Concomitant]
  4. ALPRAZOLAM [Concomitant]
  5. NEXIUM [Concomitant]
  6. CELEXA [Concomitant]

REACTIONS (1)
  - NEOPLASM PROGRESSION [None]
